FAERS Safety Report 18259372 (Version 5)
Quarter: 2020Q4

REPORT INFORMATION
  Report Type: Spontaneous
  Country: US (occurrence: US)
  Receive Date: 20200911
  Receipt Date: 20201029
  Transmission Date: 20210113
  Serious: No
  Sender: FDA-Public Use
  Company Number: US-PFIZER INC-2020349713

PATIENT
  Age: 48 Year
  Sex: Female
  Weight: 57.61 kg

DRUGS (2)
  1. PREMPRO [Suspect]
     Active Substance: ESTROGENS, CONJUGATED\MEDROXYPROGESTERONE ACETATE
     Dosage: UNK
  2. PREMPRO [Suspect]
     Active Substance: ESTROGENS, CONJUGATED\MEDROXYPROGESTERONE ACETATE
     Indication: ARTIFICIAL MENOPAUSE
     Dosage: 1 DF, DAILY
     Route: 048

REACTIONS (9)
  - Headache [Unknown]
  - Hot flush [Unknown]
  - Abdominal pain [Unknown]
  - Lethargy [Unknown]
  - Breast swelling [Unknown]
  - Night sweats [Unknown]
  - Nausea [Unknown]
  - Weight increased [Unknown]
  - Breast pain [Unknown]

NARRATIVE: CASE EVENT DATE: 202008
